FAERS Safety Report 5995817-6 (Version None)
Quarter: 2008Q4

REPORT INFORMATION
  Report Type: 
  Country: None (occurrence: None)
  Receive Date: 20081212
  Receipt Date: 20081202
  Transmission Date: 20090506
  Serious: Yes (Death)
  Sender: FDA-Public Use
  Company Number: PE-PFIZER INC-2008152205

PATIENT

DRUGS (1)
  1. LOPID [Suspect]
     Indication: DYSLIPIDAEMIA
     Dosage: 900 MG, UNK
     Dates: start: 20080408, end: 20081018

REACTIONS (1)
  - DEATH [None]
